FAERS Safety Report 14142006 (Version 1)
Quarter: 2017Q4

REPORT INFORMATION
  Report Type: Spontaneous
  Country: IT (occurrence: IT)
  Receive Date: 20171030
  Receipt Date: 20171030
  Transmission Date: 20180321
  Serious: Yes (Other)
  Sender: FDA-Public Use
  Company Number: IT-B. BRAUN MEDICAL INC.-2032700

PATIENT
  Age: 70 Year
  Sex: Male
  Weight: 77 kg

DRUGS (3)
  1. CANREONATE POTASSIUM [Concomitant]
     Route: 048
     Dates: start: 20171005, end: 20171016
  2. METRONIDAZOLE. [Suspect]
     Active Substance: METRONIDAZOLE
     Indication: CLOSTRIDIUM DIFFICILE COLITIS
     Route: 042
     Dates: start: 20171006, end: 20171010
  3. URSODEOXYCHOLIC ACID [Concomitant]
     Active Substance: URSODIOL
     Route: 048
     Dates: start: 20171002, end: 20171016

REACTIONS (3)
  - Thrombocytopenia [Unknown]
  - Prothrombin time prolonged [Unknown]
  - Disseminated intravascular coagulation [Unknown]
